FAERS Safety Report 7040139-8 (Version None)
Quarter: 2010Q4

REPORT INFORMATION
  Report Type: 
  Country: None (occurrence: None)
  Receive Date: 20101012
  Receipt Date: 20101001
  Transmission Date: 20110411
  Serious: Yes (Other)
  Sender: FDA-Public Use
  Company Number: PHHY2010JP66054

PATIENT
  Age: 6 Year
  Sex: Female

DRUGS (1)
  1. TEGRETOL [Suspect]
     Dosage: UNK

REACTIONS (2)
  - COAGULATION FACTOR DECREASED [None]
  - HAEMORRHAGIC DIATHESIS [None]
